FAERS Safety Report 9784700 (Version 3)
Quarter: 2015Q1

REPORT INFORMATION
  Report Type: Report from Study
  Country: CO (occurrence: CO)
  Receive Date: 20131226
  Receipt Date: 20150129
  Transmission Date: 20150721
  Serious: Yes (Hospitalization, Other)
  Sender: FDA-Public Use
  Company Number: CO-AMGEN-COLCT2011051701

PATIENT
  Age: 33 Year
  Sex: Male
  Weight: 61.2 kg

DRUGS (7)
  1. IBUPROFEN. [Concomitant]
     Active Substance: IBUPROFEN
     Indication: SPONDYLITIS
     Dosage: 1600 MG, 1X/DAY
     Route: 048
     Dates: start: 20110617
  2. ETANERCEPT [Suspect]
     Active Substance: ETANERCEPT
     Indication: PRODUCT USED FOR UNKNOWN INDICATION
     Dosage: 0MG QWK
     Route: 058
     Dates: start: 20110806, end: 20110910
  3. DICLOFENAC [Concomitant]
     Active Substance: DICLOFENAC
     Indication: PAIN
     Dosage: 75 MG, 1X/DAY
     Route: 048
     Dates: start: 20110916, end: 20110921
  4. SULFASALAZINE. [Concomitant]
     Active Substance: SULFASALAZINE
     Indication: SPONDYLITIS
     Dosage: 50 MG, 1X/DAY
     Route: 048
     Dates: start: 20110113
  5. DICLOXACILLIN [Concomitant]
     Active Substance: DICLOXACILLIN
     Indication: ANAL ABSCESS
     Dosage: 500 MG, 1X/DAY
     Route: 048
     Dates: start: 20110916, end: 20110921
  6. DICLOFENAC [Concomitant]
     Active Substance: DICLOFENAC
     Indication: ANAL ABSCESS
  7. ACETAMINOPHEN. [Concomitant]
     Active Substance: ACETAMINOPHEN
     Indication: ANAL ABSCESS
     Dosage: 500 MG, 1X/DAY
     Route: 048
     Dates: start: 20110916, end: 20110921

REACTIONS (2)
  - Uveitis [Recovered/Resolved]
  - Anal abscess [Recovered/Resolved]

NARRATIVE: CASE EVENT DATE: 20110912
